FAERS Safety Report 8802372 (Version 2)
Quarter: 2015Q2

REPORT INFORMATION
  Report Type: Report from Study
  Country: US (occurrence: US)
  Receive Date: 20120921
  Receipt Date: 20150624
  Transmission Date: 20150821
  Serious: Yes (Death, Other)
  Sender: FDA-Public Use
  Company Number: US-ROCHE-1125972

PATIENT
  Age: 49 Year
  Sex: Female

DRUGS (13)
  1. AVASTIN [Suspect]
     Active Substance: BEVACIZUMAB
     Indication: RENAL CELL CARCINOMA
     Route: 042
     Dates: start: 20050414
  2. SYNTHROID [Concomitant]
     Active Substance: LEVOTHYROXINE SODIUM
  3. AVASTIN [Suspect]
     Active Substance: BEVACIZUMAB
     Indication: RENAL CANCER
     Dosage: REDUCED
     Route: 042
     Dates: start: 20050531
  4. LASIX [Concomitant]
     Active Substance: FUROSEMIDE
     Route: 065
  5. KYTRIL [Concomitant]
     Active Substance: GRANISETRON HYDROCHLORIDE
     Route: 065
  6. LOMOTIL (UNITED STATES) [Concomitant]
  7. ATIVAN [Concomitant]
     Active Substance: LORAZEPAM
     Route: 065
  8. COUMADIN [Suspect]
     Active Substance: WARFARIN SODIUM
     Indication: DEEP VEIN THROMBOSIS
     Route: 048
  9. PERCOCET [Concomitant]
     Active Substance: ACETAMINOPHEN\OXYCODONE HYDROCHLORIDE
  10. TARCEVA [Suspect]
     Active Substance: ERLOTINIB HYDROCHLORIDE
     Indication: RENAL CELL CARCINOMA
     Route: 048
     Dates: start: 20050531
  11. VITAMIN K [Concomitant]
     Active Substance: PHYTONADIONE
     Route: 065
  12. INSULIN [Concomitant]
     Active Substance: INSULIN NOS
  13. ALDACTONE (UNITED STATES) [Concomitant]
     Route: 065

REACTIONS (16)
  - Discomfort [Unknown]
  - Diarrhoea [Recovered/Resolved]
  - Haemorrhoids [Unknown]
  - Abdominal distension [Recovered/Resolved]
  - Death [Fatal]
  - Abdominal pain [Unknown]
  - Asthenia [Unknown]
  - Peripheral swelling [Unknown]
  - Vomiting [Unknown]
  - Dizziness [Unknown]
  - International normalised ratio increased [Unknown]
  - Fatigue [Unknown]
  - Nausea [Unknown]
  - Lymphoedema [Unknown]
  - Off label use [Unknown]
  - Proteinuria [Unknown]

NARRATIVE: CASE EVENT DATE: 20050623
